FAERS Safety Report 15521757 (Version 1)
Quarter: 2018Q4

REPORT INFORMATION
  Report Type: Spontaneous
  Country: US (occurrence: US)
  Receive Date: 20181012
  Receipt Date: 20181012
  Transmission Date: 20190205
  Serious: Yes (Life-Threatening, Hospitalization, Disabling)
  Sender: FDA-Public Use
  Company Number: None

PATIENT
  Age: 62 Year
  Sex: Male
  Weight: 108.86 kg

DRUGS (18)
  1. ALEVE [Concomitant]
     Active Substance: NAPROXEN SODIUM
  2. MELATONIN [Concomitant]
     Active Substance: MELATONIN
  3. METFORMIN [Concomitant]
     Active Substance: METFORMIN HYDROCHLORIDE
  4. LEVOTHYROXINE. [Concomitant]
     Active Substance: LEVOTHYROXINE
  5. CIMZIA [Suspect]
     Active Substance: CERTOLIZUMAB PEGOL
     Dosage: ?          QUANTITY:1 DF DOSAGE FORM;OTHER FREQUENCY:1 EVERY 2 WEEKS;?
  6. CARVEDILOL. [Concomitant]
     Active Substance: CARVEDILOL
  7. ZOLPIDEM [Concomitant]
     Active Substance: ZOLPIDEM\ZOLPIDEM TARTRATE
  8. ENBREL [Suspect]
     Active Substance: ETANERCEPT
  9. ROSUVASTATIN. [Concomitant]
     Active Substance: ROSUVASTATIN
  10. BUPROPION XL [Concomitant]
     Active Substance: BUPROPION
  11. AMLODIPINE BENAZ [Concomitant]
  12. NOVOLOG [Concomitant]
     Active Substance: INSULIN ASPART
  13. HUMIRA [Suspect]
     Active Substance: ADALIMUMAB
     Indication: PRODUCT USED FOR UNKNOWN INDICATION
     Dosage: ?          QUANTITY:1 DF DOSAGE FORM;?
     Dates: start: 20081223, end: 20180516
  14. VITAMIN D [Concomitant]
     Active Substance: CHOLECALCIFEROL
  15. TIZANIDINE. [Concomitant]
     Active Substance: TIZANIDINE
  16. LEVEMIR [Concomitant]
     Active Substance: INSULIN DETEMIR
  17. COQ10 [Concomitant]
     Active Substance: UBIDECARENONE
  18. TRULICITY [Concomitant]
     Active Substance: DULAGLUTIDE

REACTIONS (1)
  - Chronic lymphocytic leukaemia [None]

NARRATIVE: CASE EVENT DATE: 20180516
